FAERS Safety Report 16300639 (Version 1)
Quarter: 2019Q2

REPORT INFORMATION
  Report Type: Spontaneous
  Country: US (occurrence: US)
  Receive Date: 20190510
  Receipt Date: 20190510
  Transmission Date: 20190711
  Serious: No
  Sender: FDA-Public Use
  Company Number: US-SHIRE-US201915457

PATIENT
  Age: 71 Year
  Sex: Female

DRUGS (1)
  1. MOTEGRITY [Suspect]
     Active Substance: PRUCALOPRIDE SUCCINATE
     Indication: INTESTINAL OBSTRUCTION
     Route: 065
     Dates: start: 20190430, end: 20190506

REACTIONS (2)
  - Migraine [Not Recovered/Not Resolved]
  - Constipation [Unknown]
